FAERS Safety Report 7479257-9 (Version None)
Quarter: 2011Q2

REPORT INFORMATION
  Report Type: 
  Country: None (occurrence: None)
  Receive Date: 20110513
  Receipt Date: 20110510
  Transmission Date: 20111010
  Serious: Yes (Hospitalization, Other)
  Sender: FDA-Public Use
  Company Number: GB-BRISTOL-MYERS SQUIBB COMPANY-14269559

PATIENT
  Age: 80 Year
  Sex: Female

DRUGS (8)
  1. ATENOLOL [Suspect]
     Indication: HYPERTENSION
  2. ASPIRIN [Suspect]
  3. LEVOTHYROXINE SODIUM [Suspect]
     Indication: HYPOTHYROIDISM
  4. HYDROCORTISONE [Concomitant]
     Indication: COLITIS
     Route: 042
  5. WARFARIN SODIUM [Concomitant]
  6. AMITRIPTYLINE HCL [Interacting]
     Indication: DEPRESSION
     Dosage: STRENGTH 10MG
     Route: 048
  7. ARTHROTEC [Suspect]
     Indication: ARTHRITIS
  8. PRAVASTATIN SODIUM [Interacting]
     Indication: HYPERCHOLESTEROLAEMIA
     Dosage: STRENGTH 10MG
     Route: 048

REACTIONS (10)
  - DRUG INTERACTION [None]
  - DECREASED APPETITE [None]
  - WEIGHT DECREASED [None]
  - LARGE INTESTINAL ULCER [None]
  - DEHYDRATION [None]
  - ABDOMINAL DISCOMFORT [None]
  - DRUG LEVEL INCREASED [None]
  - COLITIS [None]
  - ANAEMIA [None]
  - DIARRHOEA [None]
